FAERS Safety Report 7000557-0 (Version None)
Quarter: 2010Q3

REPORT INFORMATION
  Report Type: 
  Country: None (occurrence: None)
  Receive Date: 20100920
  Receipt Date: 20100610
  Transmission Date: 20110219
  Serious: No
  Sender: FDA-Public Use
  Company Number: US-ASTRAZENECA-2010SE27444

PATIENT
  Sex: Female

DRUGS (7)
  1. SEROQUEL [Suspect]
     Route: 048
  2. SEROQUEL [Suspect]
     Dosage: 25 MG IN THE MORNING AND AS REQUIRED
     Route: 048
  3. SEROQUEL [Suspect]
     Route: 048
  4. METHOTREXATE [Concomitant]
     Indication: RHEUMATOID ARTHRITIS
  5. ZOLOFT [Concomitant]
  6. COLLACE [Concomitant]
  7. IBUPROPHEN [Concomitant]

REACTIONS (3)
  - RASH [None]
  - SWELLING [None]
  - URTICARIA [None]
